FAERS Safety Report 9928935 (Version 4)
Quarter: 2014Q2

REPORT INFORMATION
  Report Type: Spontaneous
  Country: JP (occurrence: JP)
  Receive Date: 20140227
  Receipt Date: 20140425
  Transmission Date: 20141212
  Serious: Yes (Death, Hospitalization)
  Sender: FDA-Public Use
  Company Number: JP-MALLINCKRODT-T201304524

PATIENT
  Age: 65 Year
  Sex: Female

DRUGS (31)
  1. METHADONE [Suspect]
     Indication: CANCER PAIN
     Dosage: 5 MG (15 MG DAILY DOSE)
     Route: 050
     Dates: start: 20130822, end: 20130828
  2. METHADONE [Suspect]
     Dosage: 10 MG (20 MG DAILY DOSE)
     Route: 050
     Dates: start: 20130829, end: 20131002
  3. METHADONE [Suspect]
     Dosage: 5 MG (15 MG DAILY DOSE)
     Route: 050
     Dates: start: 20131003, end: 20131023
  4. METHADONE [Suspect]
     Dosage: 10 MG, (20 MG DAILY DOSE)
     Route: 050
     Dates: start: 20131024, end: 20131103
  5. METHADONE [Suspect]
     Dosage: 5 MG, (15 MG DAILY DOSE)
     Route: 050
     Dates: start: 20131104, end: 20131106
  6. FENTANYL [Suspect]
     Indication: PRODUCT USED FOR UNKNOWN INDICATION
     Dosage: 8.4 MG
     Route: 062
     Dates: end: 20131009
  7. FENTANYL [Suspect]
     Dosage: 4.2 MG
     Route: 062
     Dates: start: 20131010, end: 20131107
  8. LYRICA [Suspect]
     Indication: PRODUCT USED FOR UNKNOWN INDICATION
     Dosage: 75 MG, UNK
     Route: 050
     Dates: end: 20131106
  9. ZYPREXA [Suspect]
     Indication: PRODUCT USED FOR UNKNOWN INDICATION
     Dosage: 2.5 MG, UNK
     Route: 050
     Dates: end: 20131106
  10. MORPHINE HYDROCHLORIDE [Concomitant]
     Indication: PRODUCT USED FOR UNKNOWN INDICATION
     Dosage: 20 MG, PRN
     Route: 042
     Dates: start: 20130821
  11. XYLOCAINE [Concomitant]
     Indication: PRODUCT USED FOR UNKNOWN INDICATION
     Dosage: 100 MG, UNK
     Route: 042
     Dates: end: 20130903
  12. CELECOX [Concomitant]
     Indication: PRODUCT USED FOR UNKNOWN INDICATION
     Dosage: 200 MG, UNK
     Dates: end: 20131022
  13. LANDSEN [Concomitant]
     Indication: PRODUCT USED FOR UNKNOWN INDICATION
     Dosage: 1 MG, UNK
     Dates: end: 20130904
  14. OXINORM [Concomitant]
     Indication: PRODUCT USED FOR UNKNOWN INDICATION
     Dosage: 20 MG, PRN
     Dates: start: 20130821
  15. KETALAR [Concomitant]
     Indication: PRODUCT USED FOR UNKNOWN INDICATION
     Dosage: 100 MG, UNK
     Dates: end: 20130825
  16. RINDERON [Concomitant]
     Indication: PRODUCT USED FOR UNKNOWN INDICATION
     Dosage: 3 MG, UNK
     Dates: end: 20130902
  17. GASMOTIN [Concomitant]
     Indication: PRODUCT USED FOR UNKNOWN INDICATION
     Dosage: 15 MG, UNK
     Dates: end: 20131106
  18. SODIUM PICOSULFATE [Concomitant]
     Indication: PRODUCT USED FOR UNKNOWN INDICATION
     Dosage: 10 MG, UNK
     Dates: end: 20131105
  19. NEXIUM [Concomitant]
     Indication: PRODUCT USED FOR UNKNOWN INDICATION
     Dosage: 20 MG, UNK
     Dates: end: 20131029
  20. AMOXAN [Concomitant]
     Indication: PRODUCT USED FOR UNKNOWN INDICATION
     Dosage: 50 MG, UNK
     Dates: end: 20130826
  21. PRIMPERAN [Concomitant]
     Indication: PRODUCT USED FOR UNKNOWN INDICATION
     Dosage: 10 MG, UNK
     Route: 051
     Dates: start: 20130824, end: 20130824
  22. ROPION [Concomitant]
     Indication: PRODUCT USED FOR UNKNOWN INDICATION
     Dosage: 25 MG, UNK
     Route: 051
     Dates: start: 20130824, end: 20130824
  23. LINOLOSAL [Concomitant]
     Indication: PRODUCT USED FOR UNKNOWN INDICATION
     Dosage: 8 MG, UNK
     Route: 051
     Dates: start: 20130824, end: 20130824
  24. VEEN D [Concomitant]
     Indication: PRODUCT USED FOR UNKNOWN INDICATION
     Dosage: 500 ML, UNK
     Route: 051
     Dates: start: 20130826, end: 20130826
  25. TPAVELMIN [Concomitant]
     Dosage: 1 DF
     Route: 051
     Dates: start: 20130822, end: 20130823
  26. U PAN [Concomitant]
     Dosage: 0.5 MG, UNK
     Route: 050
     Dates: start: 20130905
  27. LEDERMYCIN [Concomitant]
     Dosage: 450 MG, UNK
     Route: 050
     Dates: start: 20130829, end: 20130920
  28. MONILAC [Concomitant]
     Dosage: 10 ML, UNK
     Route: 050
     Dates: start: 20130913, end: 20131105
  29. ROCEPHIN [Concomitant]
     Dosage: 1 G, UNK
     Route: 042
     Dates: start: 20131002, end: 20131005
  30. ZOSYN [Concomitant]
     Dosage: 9 G, UNK
     Route: 042
     Dates: start: 20131005, end: 20131011
  31. AMOBAN [Concomitant]
     Dosage: 7.5 MG, UNK
     Route: 050
     Dates: start: 20131007, end: 20131106

REACTIONS (4)
  - Gingival cancer [Fatal]
  - Pneumonia [Recovering/Resolving]
  - Nausea [Not Recovered/Not Resolved]
  - Vomiting [Recovered/Resolved]
